FAERS Safety Report 9198919 (Version 1)
Quarter: 2013Q1

REPORT INFORMATION
  Report Type: Spontaneous
  Country: GB (occurrence: None)
  Receive Date: 20130326
  Receipt Date: 20130326
  Transmission Date: 20140127
  Serious: Yes (Hospitalization, Other)
  Sender: FDA-Public Use
  Company Number: E2B_00000673

PATIENT
  Age: 69 Year
  Sex: Male

DRUGS (10)
  1. SERTRALINE [Suspect]
     Indication: PRODUCT USED FOR UNKNOWN INDICATION
     Route: 048
     Dates: start: 20130214, end: 20130227
  2. DALTEPARIN SODIUM [Suspect]
     Indication: PRODUCT USED FOR UNKNOWN INDICATION
     Dosage: 1 IN 1 D
     Route: 058
     Dates: end: 20130227
  3. ACETYLSALICYLIC ACID [Suspect]
     Indication: PRODUCT USED FOR UNKNOWN INDICATION
     Dosage: 75 MG, 1 IN 1 D
     Route: 048
     Dates: end: 20130227
  4. THIAMINE [Concomitant]
  5. NICOTINAMIDE+RIBOFLAVIN+PYRIDOXINE HYDROCHLORIDE+THIMINE HYDROCHLORIDE (VITAMIN B COMPOUND STRONG) [Concomitant]
  6. DIGOXIN [Concomitant]
  7. PERINDOPRIL ERBUMINE [Concomitant]
  8. ATORVASATIN [Concomitant]
  9. PARACETAMOL [Concomitant]
  10. FLUCONAZOLE [Concomitant]

REACTIONS (3)
  - Upper gastrointestinal haemorrhage [None]
  - Melaena [None]
  - Haemoglobin decreased [None]
